FAERS Safety Report 16588258 (Version 1)
Quarter: 2019Q3

REPORT INFORMATION
  Report Type: Spontaneous
  Country: DE (occurrence: DE)
  Receive Date: 20190717
  Receipt Date: 20190717
  Transmission Date: 20191004
  Serious: Yes (Life-Threatening, Hospitalization)
  Sender: FDA-Public Use
  Company Number: PHHY2019DE164452

PATIENT
  Age: 38 Year
  Sex: Male
  Weight: 93 kg

DRUGS (2)
  1. RIFAMPICIN [Suspect]
     Active Substance: RIFAMPIN
     Indication: ALOPECIA SCARRING
     Dosage: 300 MG, UNK
     Route: 048
  2. CLINDAMYCIN. [Suspect]
     Active Substance: CLINDAMYCIN
     Indication: ALOPECIA SCARRING
     Dosage: 600 MG, QD (DAILY DOSE: 600 MG MILLGRAM(S) EVERY DAYS 2 SEPARATED DOSES)
     Route: 048
     Dates: start: 201812, end: 20190522

REACTIONS (4)
  - Hypertension [Recovering/Resolving]
  - Suicidal ideation [Recovering/Resolving]
  - Generalised anxiety disorder [Recovering/Resolving]
  - Panic attack [Recovering/Resolving]

NARRATIVE: CASE EVENT DATE: 20181215
